FAERS Safety Report 12398269 (Version 3)
Quarter: 2016Q2

REPORT INFORMATION
  Report Type: Spontaneous
  Country: US (occurrence: US)
  Receive Date: 20160524
  Receipt Date: 20160617
  Transmission Date: 20160815
  Serious: Yes (Other)
  Sender: FDA-Public Use
  Company Number: US-PFIZER INC-2016240342

PATIENT
  Age: 78 Year
  Sex: Male

DRUGS (3)
  1. METOPROLOL. [Concomitant]
     Active Substance: METOPROLOL
     Dosage: UNK
     Dates: start: 201406
  2. LYRICA [Suspect]
     Active Substance: PREGABALIN
     Indication: PAIN IN EXTREMITY
     Dosage: 100 MG MORNING AND 200 MG EVENING
     Dates: start: 201311
  3. LYRICA [Suspect]
     Active Substance: PREGABALIN
     Indication: HERPES ZOSTER

REACTIONS (8)
  - Speech disorder [Unknown]
  - Suicidal ideation [Unknown]
  - Extrasystoles [Unknown]
  - Balance disorder [Unknown]
  - Memory impairment [Unknown]
  - Gait disturbance [Unknown]
  - Somnolence [Unknown]
  - Anxiety [Unknown]
